FAERS Safety Report 5357438-8 (Version None)
Quarter: 2007Q2

REPORT INFORMATION
  Report Type: 
  Country: None (occurrence: None)
  Receive Date: 20070530
  Receipt Date: 20061013
  Transmission Date: 20071010
  Serious: Yes (Hospitalization, Other)
  Sender: FDA-Public Use
  Company Number: US-0509122384

PATIENT
  Age: 28 Year
  Sex: Female
  Weight: 106.6 kg

DRUGS (7)
  1. ZYPREXA [Suspect]
     Dosage: 5 MG, DAILY (1/D), ORAL
     Route: 048
     Dates: start: 20040921, end: 20050101
  2. ABILIFY [Concomitant]
  3. SEROQUEL [Concomitant]
  4. RISPERDAL [Concomitant]
  5. GEODON [Concomitant]
  6. DEPAKOTE [Concomitant]
  7. LEXAPRO [Concomitant]

REACTIONS (2)
  - DIABETES MELLITUS NON-INSULIN-DEPENDENT [None]
  - WEIGHT INCREASED [None]
